FAERS Safety Report 8285610-6 (Version None)
Quarter: 2012Q2

REPORT INFORMATION
  Report Type: 
  Country: None (occurrence: None)
  Receive Date: 20120413
  Receipt Date: 20111205
  Transmission Date: 20120825
  Serious: No
  Sender: FDA-Public Use
  Company Number: US-ASTRAZENECA-2011SE73864

PATIENT
  Age: 56 Year
  Sex: Female

DRUGS (2)
  1. BENADRYL [Concomitant]
  2. NEXIUM [Suspect]
     Route: 048

REACTIONS (5)
  - ILL-DEFINED DISORDER [None]
  - SKIN BURNING SENSATION [None]
  - MALAISE [None]
  - CHEST PAIN [None]
  - DIZZINESS [None]
